FAERS Safety Report 18291072 (Version 1)
Quarter: 2020Q3

REPORT INFORMATION
  Report Type: Spontaneous
  Country: US (occurrence: US)
  Receive Date: 20200921
  Receipt Date: 20200921
  Transmission Date: 20201103
  Serious: Yes (Other)
  Sender: FDA-Public Use
  Company Number: US-JNJFOC-20200921976

PATIENT
  Sex: Female

DRUGS (2)
  1. ADVIL [Concomitant]
     Active Substance: IBUPROFEN
     Indication: PAIN
     Route: 065
  2. ULTRAM [Suspect]
     Active Substance: TRAMADOL HYDROCHLORIDE
     Indication: SPINAL OPERATION
     Route: 048

REACTIONS (4)
  - Deep vein thrombosis [Unknown]
  - Pain [Unknown]
  - COVID-19 [Unknown]
  - Spinal operation [Unknown]

NARRATIVE: CASE EVENT DATE: 20200824
